FAERS Safety Report 5188701-1 (Version None)
Quarter: 2006Q4

REPORT INFORMATION
  Report Type: 
  Country: None (occurrence: None)
  Receive Date: 20061214
  Receipt Date: 20061204
  Transmission Date: 20070319
  Serious: Yes (Other)
  Sender: FDA-Public Use
  Company Number: 2006149766

PATIENT

DRUGS (1)
  1. CHANTIX [Suspect]

REACTIONS (3)
  - ARTHRITIS [None]
  - IMPAIRED WORK ABILITY [None]
  - SERUM SICKNESS [None]
